FAERS Safety Report 6737946-5 (Version None)
Quarter: 2010Q2

REPORT INFORMATION
  Report Type: 
  Country: None (occurrence: None)
  Receive Date: 20100524
  Receipt Date: 20100514
  Transmission Date: 20101027
  Serious: Yes (Hospitalization)
  Sender: FDA-Public Use
  Company Number: US-JNJFOC-20100406549

PATIENT
  Sex: Female
  Weight: 63.5 kg

DRUGS (9)
  1. REMICADE [Suspect]
     Indication: RHEUMATOID ARTHRITIS
     Route: 042
  2. PLAVIX [Concomitant]
     Indication: ANTICOAGULANT THERAPY
  3. RAMIPRIL [Concomitant]
     Indication: MYOCARDIAL INFARCTION
  4. METOPROLOL TARTRATE [Concomitant]
     Indication: MYOCARDIAL INFARCTION
  5. ISOSORBID [Concomitant]
     Indication: MYOCARDIAL INFARCTION
  6. FOLIC ACID [Concomitant]
     Indication: RHEUMATOID ARTHRITIS
  7. METHOTREXATE [Concomitant]
     Indication: RHEUMATOID ARTHRITIS
     Dosage: 2.5-5MG WEEKLY
  8. ASPIRIN [Concomitant]
     Indication: RHEUMATOID ARTHRITIS
  9. LIPITOR [Concomitant]
     Indication: ARTERIAL OCCLUSIVE DISEASE

REACTIONS (1)
  - MYOCARDIAL INFARCTION [None]
